FAERS Safety Report 9029192 (Version 1)
Quarter: 2013Q1

REPORT INFORMATION
  Report Type: Spontaneous
  Country: JP (occurrence: JP)
  Receive Date: 20130125
  Receipt Date: 20130125
  Transmission Date: 20140127
  Serious: Yes (Other)
  Sender: FDA-Public Use
  Company Number: JP-JNJFOC-20130111668

PATIENT
  Age: 65 Year
  Sex: Female

DRUGS (7)
  1. ITRIZOLE [Suspect]
     Indication: OPHTHALMIC HERPES SIMPLEX
     Route: 048
  2. AMPHOTERICIN B [Suspect]
     Indication: OPHTHALMIC HERPES SIMPLEX
     Route: 061
  3. VORICONAZOLE [Suspect]
     Indication: OPHTHALMIC HERPES SIMPLEX
     Route: 061
  4. NATAMYCIN [Suspect]
     Indication: OPHTHALMIC HERPES SIMPLEX
     Route: 061
  5. VORICONAZOLE [Suspect]
     Indication: OPHTHALMIC HERPES SIMPLEX
     Route: 057
  6. AMPHOTERICIN B [Suspect]
     Indication: OPHTHALMIC HERPES SIMPLEX
     Route: 042
  7. VORICONAZOLE [Suspect]
     Indication: OPHTHALMIC HERPES SIMPLEX
     Route: 042

REACTIONS (3)
  - Corneal perforation [Unknown]
  - Hepatic enzyme increased [Unknown]
  - Drug ineffective [Unknown]
